FAERS Safety Report 13533901 (Version 1)
Quarter: 2017Q2

REPORT INFORMATION
  Report Type: Spontaneous
  Country: US (occurrence: US)
  Receive Date: 20170510
  Receipt Date: 20170510
  Transmission Date: 20170830
  Serious: No
  Sender: FDA-Public Use
  Company Number: US-SA-2017SA071016

PATIENT
  Age: 33 Year
  Sex: Female

DRUGS (3)
  1. XYZAL ALLERGY 24HR [Suspect]
     Active Substance: LEVOCETIRIZINE DIHYDROCHLORIDE
     Indication: HYPERSENSITIVITY
     Route: 065
     Dates: start: 20170414, end: 20170415
  2. BENADRYL [Concomitant]
     Active Substance: DIPHENHYDRAMINE HYDROCHLORIDE
     Route: 065
  3. VITAMIN D [Concomitant]
     Active Substance: CHOLECALCIFEROL
     Route: 065

REACTIONS (14)
  - Soliloquy [Unknown]
  - Dizziness [Unknown]
  - Muscle strain [Unknown]
  - Mydriasis [Unknown]
  - Tachycardia [Unknown]
  - Abdominal distension [Unknown]
  - Muscle tightness [Unknown]
  - Hypersensitivity [Unknown]
  - Euphoric mood [Unknown]
  - Dyspnoea [Unknown]
  - Impaired driving ability [Unknown]
  - Sluggishness [Unknown]
  - Feeling abnormal [Unknown]
  - Chest discomfort [Unknown]

NARRATIVE: CASE EVENT DATE: 20170414
